FAERS Safety Report 21445858 (Version 1)
Quarter: 2022Q4

REPORT INFORMATION
  Report Type: Spontaneous
  Country: US (occurrence: None)
  Receive Date: 20221011
  Receipt Date: 20221011
  Transmission Date: 20230112
  Serious: No
  Sender: FDA-Public Use
  Company Number: None

PATIENT
  Sex: 0

DRUGS (1)
  1. LASIX [Suspect]
     Active Substance: FUROSEMIDE

REACTIONS (2)
  - Swelling [None]
  - Pollakiuria [None]
